FAERS Safety Report 10012680 (Version 1)
Quarter: 2014Q1

REPORT INFORMATION
  Report Type: Report from Study
  Country: DE (occurrence: DE)
  Receive Date: 20140314
  Receipt Date: 20140314
  Transmission Date: 20141002
  Serious: Yes (Other)
  Sender: FDA-Public Use
  Company Number: DE-PFIZER INC-2014069336

PATIENT
  Age: 74 Year
  Sex: Female
  Weight: 76.4 kg

DRUGS (4)
  1. EXEMESTANE [Suspect]
     Indication: BREAST CANCER
     Dosage: 25 MG, DAILY
     Route: 048
     Dates: start: 20130823, end: 20130903
  2. EXEMESTANE [Suspect]
     Dosage: 25 MG, DAILY
     Route: 048
     Dates: start: 20130906
  3. AFINITOR [Suspect]
     Indication: BREAST CANCER
     Dosage: 10 MG, DAILY
     Route: 048
     Dates: start: 20130823, end: 20130905
  4. AFINITOR [Suspect]
     Dosage: 10 MG, DAILY
     Route: 048
     Dates: start: 20130914, end: 20131010

REACTIONS (1)
  - Atrial fibrillation [Recovered/Resolved]
